FAERS Safety Report 16088556 (Version 2)
Quarter: 2019Q1

REPORT INFORMATION
  Report Type: Spontaneous
  Country: US (occurrence: US)
  Receive Date: 20190319
  Receipt Date: 20190325
  Transmission Date: 20190418
  Serious: No
  Sender: FDA-Public Use
  Company Number: US-PFIZER INC-2019114982

PATIENT
  Age: 31 Year
  Sex: Female
  Weight: 122.45 kg

DRUGS (1)
  1. XELJANZ XR [Suspect]
     Active Substance: TOFACITINIB CITRATE
     Indication: PSORIATIC ARTHROPATHY
     Dosage: 11 MG, DAILY
     Route: 048
     Dates: start: 201812, end: 20190302

REACTIONS (4)
  - Influenza [Unknown]
  - Wheezing [Unknown]
  - Malaise [Unknown]
  - Respiratory disorder [Unknown]
